FAERS Safety Report 6356892-2 (Version None)
Quarter: 2009Q3

REPORT INFORMATION
  Report Type: 
  Country: None (occurrence: None)
  Receive Date: 20090910
  Receipt Date: 20090910
  Transmission Date: 20100115
  Serious: Yes (Other)
  Sender: FDA-Public Use
  Company Number: None

PATIENT
  Age: 27 Year
  Sex: Female
  Weight: 68.0396 kg

DRUGS (1)
  1. SINGULAIR [Suspect]
     Indication: ALLERGY TO PLANTS
     Dosage: 1 PILL ONCE A DAY PO
     Route: 048
     Dates: start: 20090101, end: 20090317

REACTIONS (4)
  - BURNING SENSATION [None]
  - HYPOAESTHESIA [None]
  - PAIN [None]
  - PARAESTHESIA [None]
